FAERS Safety Report 16705648 (Version 2)
Quarter: 2019Q3

REPORT INFORMATION
  Report Type: Spontaneous
  Country: US (occurrence: US)
  Receive Date: 20190815
  Receipt Date: 20190823
  Transmission Date: 20191004
  Serious: Yes (Other)
  Sender: FDA-Public Use
  Company Number: US-AMGEN-USASP2019125906

PATIENT
  Age: 84 Year
  Sex: Female
  Weight: 38.1 kg

DRUGS (1)
  1. PROLIA [Suspect]
     Active Substance: DENOSUMAB
     Indication: OSTEOPOROSIS POSTMENOPAUSAL
     Dosage: 60 MILLIGRAM, Q6MO
     Route: 065

REACTIONS (11)
  - Dyspnoea [Unknown]
  - Visual impairment [Unknown]
  - Pneumonia [Unknown]
  - Hip fracture [Unknown]
  - Somnolence [Unknown]
  - Decreased appetite [Unknown]
  - Nasopharyngitis [Unknown]
  - Influenza [Unknown]
  - Feeling abnormal [Unknown]
  - Gait disturbance [Unknown]
  - Asthenia [Unknown]

NARRATIVE: CASE EVENT DATE: 201804
